FAERS Safety Report 8419948-6 (Version None)
Quarter: 2012Q2

REPORT INFORMATION
  Report Type: 
  Country: None (occurrence: None)
  Receive Date: 20120607
  Receipt Date: 20120521
  Transmission Date: 20120825
  Serious: Yes (Death, Other)
  Sender: FDA-Public Use
  Company Number: FR-PFIZER INC-2009226415

PATIENT
  Sex: Male

DRUGS (12)
  1. ACUPAN [Suspect]
     Dosage: 3 DF, UNK
     Route: 042
     Dates: start: 20081104
  2. ELOXATIN [Suspect]
     Indication: CHEMOTHERAPY
     Dosage: 150 UNK, UNK
     Route: 042
     Dates: start: 20081104, end: 20081104
  3. ZOFRAN [Suspect]
     Indication: PREMEDICATION
     Dosage: UNK
     Route: 042
     Dates: start: 20081104, end: 20081104
  4. PRIMPERAN TAB [Suspect]
     Indication: PREMEDICATION
     Dosage: UNK
     Route: 042
     Dates: start: 20081104, end: 20081104
  5. SOLU-MEDROL [Suspect]
     Indication: PREMEDICATION
     Dosage: UNK
     Route: 042
     Dates: start: 20081104, end: 20081104
  6. FLUOROURACIL [Suspect]
     Indication: CHEMOTHERAPY
     Dosage: UNK
     Route: 042
     Dates: start: 20081104, end: 20081105
  7. AVASTIN [Suspect]
     Indication: CHEMOTHERAPY
     Dosage: UNK
     Route: 042
     Dates: start: 20081106, end: 20081106
  8. LASIX [Concomitant]
     Dosage: UNK
  9. ALFUZOSIN HCL [Concomitant]
     Dosage: UNK
  10. NEXIUM [Concomitant]
     Dosage: UNK
  11. LEVOFLOXACIN [Concomitant]
     Dosage: UNK
  12. AUGMENTIN [Concomitant]
     Dosage: UNK

REACTIONS (1)
  - MYOCARDIAL INFARCTION [None]
